FAERS Safety Report 25244072 (Version 1)
Quarter: 2025Q2

REPORT INFORMATION
  Report Type: Spontaneous
  Country: CN (occurrence: CN)
  Receive Date: 20250428
  Receipt Date: 20250428
  Transmission Date: 20250716
  Serious: Yes (Other)
  Sender: ABBVIE
  Company Number: CN-PFIZER INC-PV202500047839

PATIENT
  Age: 52 Year
  Sex: Male

DRUGS (1)
  1. AVIBACTAM SODIUM [Suspect]
     Active Substance: AVIBACTAM SODIUM
     Indication: Product used for unknown indication
     Route: 065
     Dates: start: 2025

REACTIONS (6)
  - Cerebral haemorrhage [Unknown]
  - Gastritis [Unknown]
  - Moyamoya disease [Unknown]
  - Pleural effusion [Unknown]
  - Bacteraemia [Unknown]
  - Anaemia [Unknown]
